FAERS Safety Report 22093879 (Version 1)
Quarter: 2023Q1

REPORT INFORMATION
  Report Type: Spontaneous
  Country: IN (occurrence: None)
  Receive Date: 20230314
  Receipt Date: 20230314
  Transmission Date: 20230417
  Serious: Yes (Hospitalization, Other)
  Sender: FDA-Public Use
  Company Number: None

PATIENT
  Age: 65 Year
  Sex: Female

DRUGS (1)
  1. BACLOFEN [Suspect]
     Active Substance: BACLOFEN
     Indication: Hiccups
     Dosage: FREQUENCY : 3 TIMES A DAY;?
     Route: 048

REACTIONS (9)
  - Neurotoxicity [None]
  - Frontotemporal dementia [None]
  - Quadriparesis [None]
  - Depressed level of consciousness [None]
  - Areflexia [None]
  - Aphasia [None]
  - Confabulation [None]
  - Blood pressure increased [None]
  - Haemodialysis [None]
